FAERS Safety Report 5232502-2 (Version None)
Quarter: 2007Q1

REPORT INFORMATION
  Report Type: 
  Country: None (occurrence: None)
  Receive Date: 20070206
  Receipt Date: 20070206
  Transmission Date: 20070707
  Serious: Yes (Death)
  Sender: FDA-Public Use
  Company Number: None

PATIENT
  Sex: Female
  Weight: 53.978 kg

DRUGS (3)
  1. ERLOTINIB 150 MG GENETECH [Suspect]
     Indication: LUNG CANCER METASTATIC
     Dosage: 150 MG DAILY ORAL
     Route: 048
     Dates: start: 20061212, end: 20070122
  2. BEVACIZUMAB 15MG/KG GENENTECH [Suspect]
     Indication: LUNG CANCER METASTATIC
     Dosage: 15MG/KG Q 21 DAYS IV
     Route: 042
     Dates: start: 20061212
  3. BEVACIZUMAB 15MG/KG GENENTECH [Suspect]
     Indication: LUNG CANCER METASTATIC
     Dosage: 15MG/KG Q 21 DAYS IV
     Route: 042
     Dates: start: 20070102

REACTIONS (3)
  - ASTHENIA [None]
  - DISEASE PROGRESSION [None]
  - METASTASES TO BONE [None]
